FAERS Safety Report 13287348 (Version 1)
Quarter: 2017Q1

REPORT INFORMATION
  Report Type: Spontaneous
  Country: US (occurrence: US)
  Receive Date: 20170302
  Receipt Date: 20170302
  Transmission Date: 20170428
  Serious: Yes (Hospitalization, Other)
  Sender: FDA-Public Use
  Company Number: US-MALLINCKRODT-T201700731

PATIENT
  Age: 55 Year
  Sex: Female
  Weight: 91 kg

DRUGS (22)
  1. DUONEB [Concomitant]
     Active Substance: ALBUTEROL SULFATE\IPRATROPIUM BROMIDE
     Indication: CHRONIC OBSTRUCTIVE PULMONARY DISEASE
  2. PHENTERMINE. [Concomitant]
     Active Substance: PHENTERMINE
     Dosage: 37.5 MG, QD
     Route: 048
     Dates: start: 20160325, end: 201606
  3. FENTANYL TRANSDERMAL SYSTEM [Suspect]
     Active Substance: FENTANYL
     Dosage: 50 UG/HR, Q72HR
     Route: 062
     Dates: start: 20160111, end: 20160615
  4. LORTAB ASA [Suspect]
     Active Substance: ASPIRIN\HYDROCODONE BITARTRATE
     Dosage: 10/500 MG 1-2 TABS Q6HRS PRN
     Route: 048
     Dates: start: 20160619
  5. CETIRIZINE [Concomitant]
     Active Substance: CETIRIZINE HYDROCHLORIDE
     Indication: HYPERSENSITIVITY
     Dosage: 10 MG, QD
     Route: 048
     Dates: start: 20150515
  6. LIPITOR [Concomitant]
     Active Substance: ATORVASTATIN CALCIUM
     Dosage: 40 MG, QD
     Route: 048
  7. NAPROSYN [Concomitant]
     Active Substance: NAPROXEN
     Dosage: 500 MG, BID WITH FOOD
     Route: 048
     Dates: start: 20160422
  8. NEXIUM [Concomitant]
     Active Substance: ESOMEPRAZOLE MAGNESIUM
     Indication: GASTROOESOPHAGEAL REFLUX DISEASE
     Dosage: 40 MG, UNK
     Route: 048
     Dates: start: 20160316
  9. DULOXETINE. [Concomitant]
     Active Substance: DULOXETINE
     Dosage: 60 MG, BID
     Dates: start: 20160116
  10. DUONEB [Concomitant]
     Active Substance: ALBUTEROL SULFATE\IPRATROPIUM BROMIDE
     Indication: ASTHMA
     Dosage: ONE NEBULE BID
     Dates: start: 20150729
  11. OXYGEN. [Concomitant]
     Active Substance: OXYGEN
     Dosage: 2 LITERS QHS
     Dates: start: 20150818
  12. RANITIDINE. [Concomitant]
     Active Substance: RANITIDINE
     Dosage: 300 MG, BID
     Route: 048
     Dates: start: 20160307
  13. XANAX [Suspect]
     Active Substance: ALPRAZOLAM
     Indication: PRODUCT USED FOR UNKNOWN INDICATION
     Dosage: 2 MG, BID
     Route: 048
     Dates: start: 20160502, end: 20160619
  14. FENTANYL TRANSDERMAL SYSTEM [Suspect]
     Active Substance: FENTANYL
     Indication: BACK PAIN
     Dosage: 25 UG/HR
     Route: 062
     Dates: start: 20151211, end: 20160111
  15. UNSPECIFIED CHEMO DRUG [Concomitant]
     Indication: THROMBOCYTOSIS
     Route: 065
  16. CYCLOBENZAPRINE [Concomitant]
     Active Substance: CYCLOBENZAPRINE
     Dosage: ONE TABLET TID
     Dates: start: 20160307
  17. SYMBICORT [Concomitant]
     Active Substance: BUDESONIDE\FORMOTEROL FUMARATE DIHYDRATE
     Dosage: 2 PUFFS BID
     Dates: start: 20150806
  18. LORTAB ASA [Suspect]
     Active Substance: ASPIRIN\HYDROCODONE BITARTRATE
     Indication: BACK PAIN
     Dosage: 10 MG/325 MG QID
     Dates: start: 20160502, end: 201606
  19. XANAX [Suspect]
     Active Substance: ALPRAZOLAM
     Dosage: 1 MG, Q8H PRN
     Route: 048
     Dates: start: 20160619
  20. ALBUTEROL SULFATE. [Concomitant]
     Active Substance: ALBUTEROL SULFATE
     Dosage: INHALE 1 PUFF EVERY 4-6 HRS PRN
     Dates: start: 20160502
  21. HYDROUREA [Concomitant]
     Dosage: 500 MG, 3 TIMES PER WK
     Route: 048
     Dates: start: 20160111
  22. PREDNISONE. [Concomitant]
     Active Substance: PREDNISONE
     Dosage: 20 MG, BID
     Route: 048
     Dates: start: 20160503

REACTIONS (9)
  - Haemorrhage [Unknown]
  - Resuscitation [Recovered/Resolved]
  - Accidental overdose [Recovered/Resolved]
  - Fatigue [Unknown]
  - Mouth haemorrhage [Unknown]
  - Pneumonia aspiration [Recovering/Resolving]
  - Cystitis [Recovered/Resolved]
  - Coagulopathy [Unknown]
  - Encephalopathy [Unknown]

NARRATIVE: CASE EVENT DATE: 201606
